FAERS Safety Report 7552782-8 (Version None)
Quarter: 2011Q2

REPORT INFORMATION
  Report Type: 
  Country: None (occurrence: None)
  Receive Date: 20110616
  Receipt Date: 20110614
  Transmission Date: 20111010
  Serious: Yes (Hospitalization, Other)
  Sender: FDA-Public Use
  Company Number: JP-PFIZER INC-2011044821

PATIENT
  Age: 63 Year
  Sex: Female

DRUGS (11)
  1. EPADEL [Concomitant]
     Dosage: 1200 MG/DAY
     Route: 048
     Dates: start: 20110301
  2. CALBLOCK [Concomitant]
     Dosage: 16 MG/DAY
     Route: 048
     Dates: start: 20101216
  3. VOGLIBOSE [Concomitant]
     Dosage: 0.9 MG/DAY
     Route: 048
     Dates: start: 20090930
  4. EPALRESTAT [Concomitant]
     Dosage: 150 MG/DAY
     Route: 048
     Dates: start: 20100523
  5. LYRICA [Suspect]
     Indication: DIABETIC NEUROPATHY
  6. IRBESARTAN [Suspect]
     Dosage: 50 MG DAILY
     Route: 048
     Dates: start: 20091126, end: 20110101
  7. ACTOS [Concomitant]
     Dosage: 30 MG/DAY
     Route: 048
     Dates: start: 20101216
  8. LYRICA [Suspect]
     Indication: PAIN IN EXTREMITY
     Dosage: 75 MG, 1X/DAY
     Route: 048
     Dates: start: 20110301, end: 20110101
  9. PRAVASTATIN SODIUM [Suspect]
     Dosage: 10 MG DAILY
     Route: 048
     Dates: start: 20091027, end: 20110101
  10. METHYCOBAL [Concomitant]
     Dosage: 1.5 MG/DAY
     Route: 048
     Dates: start: 20101216
  11. INSULIN GLARGINE [Concomitant]
     Dosage: UNK
     Dates: start: 20090124

REACTIONS (3)
  - DIZZINESS [None]
  - BRAIN CONTUSION [None]
  - LOSS OF CONSCIOUSNESS [None]
